FAERS Safety Report 8321586-0 (Version None)
Quarter: 2012Q2

REPORT INFORMATION
  Report Type: 
  Country: None (occurrence: None)
  Receive Date: 20120430
  Receipt Date: 20091014
  Transmission Date: 20120825
  Serious: No
  Sender: FDA-Public Use
  Company Number: US-TEVA-2009011503

PATIENT
  Sex: Female
  Weight: 72.64 kg

DRUGS (9)
  1. LEVOTHROID [Concomitant]
     Dates: start: 19960101
  2. DURAGESIC-100 [Concomitant]
     Dates: start: 20050101
  3. PERCOCET [Concomitant]
     Dates: start: 20050101
  4. MINOCYCLINE HCL [Concomitant]
  5. NUVIGIL [Suspect]
     Indication: NARCOLEPSY
     Route: 048
     Dates: start: 20090801
  6. METFORMIN HCL [Concomitant]
     Dates: start: 20030101
  7. METHOCARBAMOL [Concomitant]
     Dates: start: 19970101
  8. PROPRANOLOL [Concomitant]
  9. NEURONTIN [Concomitant]
     Dates: start: 20050101

REACTIONS (1)
  - CHEST DISCOMFORT [None]
